FAERS Safety Report 6677322-7 (Version None)
Quarter: 2010Q2

REPORT INFORMATION
  Report Type: 
  Country: None (occurrence: None)
  Receive Date: 20100408
  Receipt Date: 20100408
  Transmission Date: 20101027
  Serious: Yes (Other)
  Sender: FDA-Public Use
  Company Number: None

PATIENT
  Age: 71 Year
  Sex: Female
  Weight: 58.514 kg

DRUGS (1)
  1. LYRICA [Suspect]
     Indication: FIBROMYALGIA
     Dosage: 10:00 PM
     Dates: start: 20100324

REACTIONS (4)
  - ATAXIA [None]
  - DRY MOUTH [None]
  - DYSARTHRIA [None]
  - VISUAL IMPAIRMENT [None]
